FAERS Safety Report 25937737 (Version 1)
Quarter: 2025Q4

REPORT INFORMATION
  Report Type: Spontaneous
  Country: CA (occurrence: CA)
  Receive Date: 20251018
  Receipt Date: 20251018
  Transmission Date: 20260118
  Serious: Yes (Life-Threatening, Hospitalization, Other)
  Sender: AUROBINDO
  Company Number: CA-MLMSERVICE-20251003-PI667178-00329-2

PATIENT
  Age: 48 Year
  Sex: Male

DRUGS (18)
  1. PIPERACILLIN SODIUM\TAZOBACTAM SODIUM [Suspect]
     Active Substance: PIPERACILLIN SODIUM\TAZOBACTAM SODIUM
     Indication: Clostridium bacteraemia
     Dosage: 4.5 MILLIGRAM, FOUR TIMES/DAY
     Route: 042
  2. VANCOMYCIN HYDROCHLORIDE [Suspect]
     Active Substance: VANCOMYCIN HYDROCHLORIDE
     Indication: Clostridium bacteraemia
     Dosage: 3000 MILLIGRAM, ONCE A DAY
     Route: 042
  3. VANCOMYCIN HYDROCHLORIDE [Suspect]
     Active Substance: VANCOMYCIN HYDROCHLORIDE
     Indication: Necrotising fasciitis
     Dosage: 1750 MILLIGRAM, TWO TIMES A DAY
     Route: 042
  4. VANCOMYCIN HYDROCHLORIDE [Suspect]
     Active Substance: VANCOMYCIN HYDROCHLORIDE
     Indication: Sepsis
     Dosage: STARTED AFTER DISCONTINUATION OF PIPERACILLIN-TAZOBACTAM
     Route: 042
  5. CLINDAMYCIN [Concomitant]
     Active Substance: CLINDAMYCIN
     Indication: Clostridium bacteraemia
     Dosage: 900 MILLIGRAM, 3 TIMES A DAY
     Route: 042
  6. METRONIDAZOLE [Concomitant]
     Active Substance: METRONIDAZOLE
     Indication: Clostridium bacteraemia
     Dosage: 500 MILLIGRAM, TWO TIMES A DAY
     Route: 042
  7. METRONIDAZOLE [Concomitant]
     Active Substance: METRONIDAZOLE
     Indication: Necrotising fasciitis
  8. METRONIDAZOLE [Concomitant]
     Active Substance: METRONIDAZOLE
     Indication: Sepsis
  9. CIPROFLOXACIN [Concomitant]
     Active Substance: CIPROFLOXACIN
     Indication: Clostridium bacteraemia
     Dosage: UNK
     Route: 065
  10. CIPROFLOXACIN [Concomitant]
     Active Substance: CIPROFLOXACIN
     Indication: Necrotising fasciitis
  11. CIPROFLOXACIN [Concomitant]
     Active Substance: CIPROFLOXACIN
     Indication: Sepsis
  12. DIPHENHYDRAMINE [Concomitant]
     Active Substance: DIPHENHYDRAMINE
     Indication: Clostridium bacteraemia
     Route: 065
  13. HYDROCORTISONE SODIUM SUCCINATE [Concomitant]
     Active Substance: HYDROCORTISONE SODIUM SUCCINATE
     Indication: Eosinophilia
     Dosage: 100 MILLIGRAM, SINGLE
     Route: 042
  14. AMLODIPINE [Concomitant]
     Active Substance: AMLODIPINE BESYLATE
     Indication: Product used for unknown indication
     Dosage: UNK
     Route: 065
  15. CANDESARTAN [Concomitant]
     Active Substance: CANDESARTAN
     Indication: Product used for unknown indication
     Dosage: UNK
     Route: 065
  16. GLICLAZIDE [Concomitant]
     Active Substance: GLICLAZIDE
     Indication: Product used for unknown indication
     Dosage: UNK
     Route: 065
  17. METOPROLOL [Concomitant]
     Active Substance: METOPROLOL
     Indication: Product used for unknown indication
     Dosage: UNK
     Route: 065
  18. NPH INSULIN [Concomitant]
     Active Substance: INSULIN BEEF
     Indication: Product used for unknown indication
     Dosage: INSULIN NEUTRAL PROTAMINE HAGEDORN
     Route: 065

REACTIONS (6)
  - Linear IgA disease [Recovering/Resolving]
  - Drug clearance decreased [Recovering/Resolving]
  - Antibiotic level above therapeutic [Recovering/Resolving]
  - Drug eruption [Unknown]
  - Rash morbilliform [Recovered/Resolved]
  - Eosinophilia [Recovered/Resolved]
